FAERS Safety Report 9456455 (Version 1)
Quarter: 2013Q3

REPORT INFORMATION
  Report Type: Spontaneous
  Country: US (occurrence: US)
  Receive Date: 20130813
  Receipt Date: 20130813
  Transmission Date: 20140515
  Serious: Yes (Other)
  Sender: FDA-Public Use
  Company Number: US-BRISTOL-MYERS SQUIBB COMPANY-19163799

PATIENT
  Age: 60 Year
  Sex: Female
  Weight: 88.43 kg

DRUGS (20)
  1. ABATACEPT SUBQ INJECTION 125MG/ML [Suspect]
     Route: 058
  2. WARFARIN SODIUM [Suspect]
  3. ENOXAPARIN SODIUM [Suspect]
     Dosage: 1DF: 30/0.3ML
  4. LASIX [Concomitant]
  5. TYLENOL [Concomitant]
  6. METHOTREXATE [Concomitant]
  7. TRAMADOL HCL [Concomitant]
  8. VENTOLIN INHALER [Concomitant]
  9. ATACAND [Concomitant]
  10. SYMBICORT [Concomitant]
     Dosage: 80+4.5 UNITS NOS
  11. NEXIUM [Concomitant]
  12. SPIRIVA [Concomitant]
  13. ACETYLSALICYLIC ACID [Concomitant]
  14. POTASSIUM [Concomitant]
  15. CLARITIN [Concomitant]
  16. FLEXERIL [Concomitant]
  17. ALEVE [Concomitant]
  18. FOLIC ACID [Concomitant]
  19. CENESTIN [Concomitant]
  20. PERCOCET [Concomitant]
     Dosage: 1DF: 2.5-325 UNITS NOS

REACTIONS (3)
  - Thrombosis [Unknown]
  - Fall [Unknown]
  - Limb injury [Unknown]
